FAERS Safety Report 20074188 (Version 2)
Quarter: 2022Q1

REPORT INFORMATION
  Report Type: Report from Study
  Country: CO (occurrence: CO)
  Receive Date: 20211116
  Receipt Date: 20220128
  Transmission Date: 20220423
  Serious: Yes (Other)
  Sender: FDA-Public Use
  Company Number: CO-NOVARTISPH-NVSC2021CO259320

PATIENT
  Sex: Female
  Weight: 47 kg

DRUGS (2)
  1. COSENTYX [Suspect]
     Active Substance: SECUKINUMAB
     Indication: Psoriasis
     Dosage: 300 MG, QMO (2 INJECTIONS)
     Route: 058
  2. COSENTYX [Suspect]
     Active Substance: SECUKINUMAB
     Dosage: 1 DF, QMO (1 INJECTION)
     Route: 058

REACTIONS (2)
  - Diabetes mellitus [Unknown]
  - Weight decreased [Unknown]
